FAERS Safety Report 5777669-2 (Version None)
Quarter: 2008Q2

REPORT INFORMATION
  Report Type: 
  Country: None (occurrence: None)
  Receive Date: 20080618
  Receipt Date: 20080610
  Transmission Date: 20081010
  Serious: Yes (Hospitalization)
  Sender: FDA-Public Use
  Company Number: JP-ASTRAZENECA-2008AP03972

PATIENT
  Age: 58 Year
  Sex: Male

DRUGS (19)
  1. FOSCAVIR [Suspect]
     Indication: CYTOMEGALOVIRUS ENTEROCOLITIS
     Route: 041
     Dates: start: 20070311, end: 20070331
  2. FOSCAVIR [Suspect]
     Indication: CYTOMEGALOVIRUS ANTIGEN POSITIVE
     Route: 041
     Dates: start: 20070311, end: 20070331
  3. FOSCAVIR [Suspect]
     Route: 041
     Dates: start: 20070401, end: 20070507
  4. FOSCAVIR [Suspect]
     Route: 041
     Dates: start: 20070401, end: 20070507
  5. FOSCAVIR [Suspect]
     Route: 041
     Dates: start: 20070508, end: 20070610
  6. FOSCAVIR [Suspect]
     Route: 041
     Dates: start: 20070508, end: 20070610
  7. FOSCAVIR [Suspect]
     Route: 041
     Dates: start: 20070626, end: 20070710
  8. FOSCAVIR [Suspect]
     Route: 041
     Dates: start: 20070626, end: 20070710
  9. STOCRIN [Suspect]
     Indication: HIV INFECTION
     Dosage: FREQUENCY UNKNOWN
     Route: 048
     Dates: start: 20070606, end: 20070613
  10. EPZICOM [Suspect]
     Indication: HIV INFECTION
     Route: 048
     Dates: start: 20070606, end: 20070614
  11. ZITHROMAX [Suspect]
     Indication: ANTIBIOTIC PROPHYLAXIS
     Route: 048
     Dates: start: 20070207, end: 20070530
  12. ZITHROMAX [Suspect]
     Indication: OPPORTUNISTIC INFECTION PROPHYLAXIS
     Route: 048
     Dates: start: 20070207, end: 20070530
  13. ZITHROMAX [Suspect]
     Route: 048
     Dates: start: 20070612, end: 20080331
  14. ZITHROMAX [Suspect]
     Route: 048
     Dates: start: 20070612, end: 20080331
  15. NORVIR [Suspect]
     Dosage: FREQUENCY UNKNOWN
     Route: 048
     Dates: start: 20070718, end: 20080331
  16. REYATAZ [Suspect]
     Dosage: FREQUENCY UNKNOWN
     Route: 048
     Dates: start: 20070718, end: 20080331
  17. TRUVADA [Suspect]
     Route: 048
     Dates: start: 20070718, end: 20080331
  18. MICAFUNGIN SODIUM [Concomitant]
     Indication: INFECTION PROPHYLAXIS
     Route: 041
     Dates: start: 20070330, end: 20070611
  19. ITRACONAZOLE [Concomitant]
     Route: 048
     Dates: start: 20070612

REACTIONS (7)
  - CYTOMEGALOVIRUS ANTIGEN POSITIVE [None]
  - DRUG ERUPTION [None]
  - GLAUCOMA [None]
  - HYPOKALAEMIA [None]
  - HYPONATRAEMIA [None]
  - RENAL IMPAIRMENT [None]
  - UVEITIS [None]
